FAERS Safety Report 9747700 (Version 1)
Quarter: 2013Q4

REPORT INFORMATION
  Report Type: Spontaneous
  Country: MA (occurrence: None)
  Receive Date: 20131206
  Receipt Date: 20131206
  Transmission Date: 20140711
  Serious: Yes (Disabling)
  Sender: FDA-Public Use
  Company Number: AXC-2013-000640

PATIENT
  Age: 67 Year
  Sex: Male

DRUGS (1)
  1. PYLERA [Suspect]
     Indication: PRODUCT USED FOR UNKNOWN INDICATION
     Dosage: 4 DF, TID, UNKNOWN
     Dates: start: 201311

REACTIONS (5)
  - Blindness [None]
  - Amnesia [None]
  - Impaired driving ability [None]
  - Fall [None]
  - Inappropriate schedule of drug administration [None]
